FAERS Safety Report 15455882 (Version 1)
Quarter: 2018Q4

REPORT INFORMATION
  Report Type: Spontaneous
  Country: IT (occurrence: IT)
  Receive Date: 20181002
  Receipt Date: 20181002
  Transmission Date: 20190204
  Serious: Yes (Other)
  Sender: FDA-Public Use
  Company Number: IT-IMPAX LABORATORIES, INC-2018-IPXL-03085

PATIENT
  Age: 41 Year
  Sex: Female

DRUGS (8)
  1. CLOBAZAM. [Concomitant]
     Active Substance: CLOBAZAM
     Dosage: 10 MG, BID
     Route: 065
  2. FOLLITROPIN ALFA [Interacting]
     Active Substance: FOLLITROPIN
     Indication: ASSISTED FERTILISATION
     Dosage: UNK
     Route: 065
  3. CHORIOGONADOTROPIN ALFA [Concomitant]
     Active Substance: CHORIOGONADOTROPIN ALFA
     Indication: ASSISTED FERTILISATION
     Dosage: UNK
     Route: 065
  4. CLOBAZAM. [Concomitant]
     Active Substance: CLOBAZAM
     Indication: PROPHYLAXIS
     Dosage: 10 MG, BID
     Route: 065
  5. GANIRELIX [Concomitant]
     Active Substance: GANIRELIX
     Indication: ASSISTED FERTILISATION
     Dosage: UNK
     Route: 065
  6. LAMOTRIGINE ODT [Interacting]
     Active Substance: LAMOTRIGINE
     Dosage: 350 MG, DAILY
     Route: 065
  7. ESTRADIOL VALERATE. [Interacting]
     Active Substance: ESTRADIOL VALERATE
     Indication: ASSISTED FERTILISATION
     Dosage: 4 MG, DAILY
     Route: 065
  8. LAMOTRIGINE ODT [Suspect]
     Active Substance: LAMOTRIGINE
     Indication: EPILEPSY
     Dosage: 450 MG, DAILY
     Route: 065

REACTIONS (5)
  - Anticonvulsant drug level decreased [Unknown]
  - Maternal exposure during pregnancy [Unknown]
  - Epileptic aura [Unknown]
  - Drug interaction [Unknown]
  - Seizure [Recovered/Resolved]
